FAERS Safety Report 8131002-X (Version None)
Quarter: 2012Q1

REPORT INFORMATION
  Report Type: 
  Country: None (occurrence: None)
  Receive Date: 20120213
  Receipt Date: 20111024
  Transmission Date: 20120608
  Serious: Yes (Hospitalization, Other)
  Sender: FDA-Public Use
  Company Number: IL-RANBAXY-2011RR-49924

PATIENT
  Age: 77 Year
  Sex: Male

DRUGS (3)
  1. AMOXICILLIN [Suspect]
     Indication: GINGIVITIS
     Dosage: UNK
     Route: 065
  2. AMOXICILLIN [Suspect]
  3. AMOXICILLIN [Suspect]
     Indication: TOOTH DISORDER
     Dosage: 500 MG/DAY
     Route: 048

REACTIONS (1)
  - ENCEPHALITIS [None]
